FAERS Safety Report 25742291 (Version 1)
Quarter: 2025Q3

REPORT INFORMATION
  Report Type: Spontaneous
  Country: EU (occurrence: EU)
  Receive Date: 20250829
  Receipt Date: 20250829
  Transmission Date: 20251020
  Serious: Yes (Other)
  Sender: TEVA
  Company Number: EU-TEVA-VS-3359230

PATIENT
  Age: 26 Year
  Sex: Female

DRUGS (1)
  1. LAMOTRIGINE [Suspect]
     Active Substance: LAMOTRIGINE
     Indication: Borderline personality disorder
     Route: 065
     Dates: start: 20250617, end: 2025

REACTIONS (8)
  - Hepatic steatosis [Unknown]
  - Fatigue [Recovering/Resolving]
  - Liver function test abnormal [Unknown]
  - Acne [Not Recovered/Not Resolved]
  - Product use in unapproved indication [Unknown]
  - Migraine [Recovered/Resolved]
  - Rash erythematous [Recovering/Resolving]
  - Oropharyngeal pain [Recovered/Resolved]

NARRATIVE: CASE EVENT DATE: 20250601
